FAERS Safety Report 8273179-1 (Version None)
Quarter: 2012Q2

REPORT INFORMATION
  Report Type: 
  Country: None (occurrence: None)
  Receive Date: 20120411
  Receipt Date: 20120402
  Transmission Date: 20120825
  Serious: Yes (Life-Threatening)
  Sender: FDA-Public Use
  Company Number: JP-BAYER-2012-022055

PATIENT
  Age: 27 Year
  Sex: Female
  Weight: 67 kg

DRUGS (3)
  1. YAZ [Suspect]
     Indication: MENSTRUATION IRREGULAR
  2. YAZ [Suspect]
     Indication: DYSMENORRHOEA
     Dosage: 1 DF, QD
     Route: 048
     Dates: start: 20110728, end: 20120224
  3. BOUFUUTSUUSHOUSAN [Concomitant]
     Indication: CONSTIPATION
     Dosage: UNK
     Route: 048

REACTIONS (4)
  - MESENTERIC OCCLUSION [None]
  - COLITIS ISCHAEMIC [None]
  - HAEMATOCHEZIA [None]
  - ABDOMINAL PAIN LOWER [None]
